FAERS Safety Report 14696300 (Version 7)
Quarter: 2020Q3

REPORT INFORMATION
  Report Type: Report from Study
  Country: PL (occurrence: PL)
  Receive Date: 20180329
  Receipt Date: 20190402
  Transmission Date: 20201105
  Serious: Yes (Death, Hospitalization, Disabling)
  Sender: FDA-Public Use
  Company Number: PL-ROCHE-2097699

PATIENT
  Age: 60 Year
  Sex: Female
  Weight: 76 kg

DRUGS (58)
  1. METOPROLOL. [Concomitant]
     Active Substance: METOPROLOL
     Route: 048
     Dates: start: 20180129, end: 20180305
  2. METHYLPREDNISOLONUM [Concomitant]
     Active Substance: METHYLPREDNISOLONE
     Route: 042
     Dates: start: 20180320, end: 20180322
  3. METHYLPREDNISOLONUM [Concomitant]
     Active Substance: METHYLPREDNISOLONE
     Route: 042
     Dates: start: 20180323
  4. FILGRASTIMUM [Concomitant]
     Indication: NEUTROPENIA
     Dosage: 30 MLN UNITS
     Route: 065
     Dates: start: 20180223, end: 20180226
  5. LINEZOLIDUM [Concomitant]
     Indication: DIARRHOEA
     Route: 042
     Dates: start: 20180315, end: 20180319
  6. LEVOFLOXACINUM [Concomitant]
     Indication: PNEUMONITIS
     Route: 042
     Dates: start: 20180316, end: 20180322
  7. METOPROLOL. [Concomitant]
     Active Substance: METOPROLOL
     Route: 048
     Dates: start: 20180306
  8. TACROLIMUS. [Concomitant]
     Active Substance: TACROLIMUS
     Route: 048
     Dates: start: 20180303, end: 20180308
  9. BUDESONIDE. [Concomitant]
     Active Substance: BUDESONIDE
     Indication: PNEUMONITIS
     Dosage: UNIT DOSE: 250 MG/ML
     Route: 055
     Dates: start: 20180219, end: 20180228
  10. METHYLPREDNISOLONUM [Concomitant]
     Active Substance: METHYLPREDNISOLONE
     Indication: ERYTHEMA
     Route: 042
     Dates: start: 20180306, end: 20180312
  11. LEVOTHYROXINUM [Concomitant]
     Indication: HYPOTHYROIDISM
     Route: 048
     Dates: start: 20180219
  12. FILGRASTIMUM [Concomitant]
     Dosage: 30 MLN UNITS
     Route: 065
     Dates: start: 20180317, end: 20180322
  13. VORICONAZOLE. [Concomitant]
     Active Substance: VORICONAZOLE
     Indication: PNEUMONITIS
     Route: 042
     Dates: start: 20180226, end: 20180305
  14. NATRIUM CHLORATUM [Concomitant]
     Indication: HYPOKALAEMIA
     Route: 042
     Dates: start: 20180322, end: 20180322
  15. MEROPENEM. [Concomitant]
     Active Substance: MEROPENEM
     Indication: PNEUMONITIS
     Route: 042
     Dates: start: 20180322
  16. CEFTAZIDIMUM [Concomitant]
     Active Substance: CEFTAZIDIME
     Route: 011
     Dates: start: 20180317, end: 20180322
  17. METHYLPREDNISOLONUM [Concomitant]
     Active Substance: METHYLPREDNISOLONE
     Route: 042
     Dates: start: 20180316, end: 20180319
  18. CIPROFLOXACIN. [Concomitant]
     Active Substance: CIPROFLOXACIN
     Indication: INFECTION PROPHYLAXIS
     Route: 042
     Dates: start: 20180219, end: 20180222
  19. PIPERACILLIN/TAZOBACTAM [Concomitant]
     Active Substance: PIPERACILLIN SODIUM\TAZOBACTAM SODIUM
     Indication: UPPER RESPIRATORY TRACT INFECTION
     Route: 042
     Dates: start: 20180223, end: 20180313
  20. OMEPRAZOLUM [Concomitant]
     Indication: PROPHYLAXIS
     Route: 042
     Dates: start: 20180211
  21. CLEMASTIN [Concomitant]
     Active Substance: CLEMASTINE
     Indication: ERYTHEMA
     Route: 042
     Dates: start: 20180219, end: 20180228
  22. ATEZOLIZUMAB. [Suspect]
     Active Substance: ATEZOLIZUMAB
     Indication: B-CELL LYMPHOMA
     Dosage: THAT WAS ALSO THE MOST RECENT DOSE THE PATIENT RECEIVED PRIOR TO THE ADVERSE EVENTS ONSET.
     Route: 042
     Dates: start: 20180111
  23. METOPROLOL. [Concomitant]
     Active Substance: METOPROLOL
     Indication: SINUS TACHYCARDIA
     Route: 048
     Dates: start: 20180129, end: 20180305
  24. TACROLIMUS. [Concomitant]
     Active Substance: TACROLIMUS
     Indication: MUCOSAL INFLAMMATION
     Route: 065
     Dates: start: 20180219, end: 20180302
  25. TACROLIMUS. [Concomitant]
     Active Substance: TACROLIMUS
     Dosage: 1 MG, 0.5 MG
     Route: 048
     Dates: start: 20180309
  26. BUDESONIDE. [Concomitant]
     Active Substance: BUDESONIDE
     Dosage: DOSE: 250 MG/ML
     Route: 055
     Dates: start: 20180301, end: 20180315
  27. CLEMASTIN [Concomitant]
     Active Substance: CLEMASTINE
     Route: 042
     Dates: start: 20180219, end: 20180219
  28. FOLIC ACID. [Concomitant]
     Active Substance: FOLIC ACID
     Indication: ANAEMIA
     Route: 048
     Dates: start: 20180305, end: 20180319
  29. OBINUTUZUMAB. [Suspect]
     Active Substance: OBINUTUZUMAB
     Indication: B-CELL LYMPHOMA
     Dosage: ON DAYS 1, 8, AND 15 OF CYCLE 1, AND ON DAY 1 OF CYCLES 2?6, GIVEN IN 21?DAY CYCLES DURING INDUCTION
     Route: 042
     Dates: start: 20171221
  30. KALDYUM [Concomitant]
     Active Substance: POTASSIUM CHLORIDE
     Indication: HYPOKALAEMIA
     Route: 048
     Dates: start: 20180205, end: 20180322
  31. DEXAMETHASON [Concomitant]
     Active Substance: DEXAMETHASONE
     Indication: CONJUNCTIVITIS
     Dosage: TO BOTH EYES
     Route: 047
     Dates: start: 20180214
  32. ENOXAPARINUM NATRICUM [Concomitant]
     Indication: PROPHYLAXIS
     Route: 058
     Dates: start: 20180223, end: 20180228
  33. ACYCLOVIR. [Concomitant]
     Active Substance: ACYCLOVIR
     Indication: PROPHYLAXIS
     Route: 048
     Dates: start: 20180214, end: 20180313
  34. SULFAMETHOXAZOLE/TRIMETHOPRIM [Concomitant]
     Active Substance: SULFAMETHOXAZOLE\TRIMETHOPRIM
     Indication: PNEUMONITIS
     Route: 042
     Dates: start: 20180313, end: 20180316
  35. TOCILIZUMAB. [Concomitant]
     Active Substance: TOCILIZUMAB
     Indication: PNEUMONITIS
     Route: 042
     Dates: start: 20180316, end: 20180316
  36. POLATUZUMAB VEDOTIN. [Suspect]
     Active Substance: POLATUZUMAB VEDOTIN
     Indication: B-CELL LYMPHOMA
     Dosage: 1.4 MG/KILOGRAM (KG) OR 1.8 MG/KG (DOSE?ESCALATION PHASE) AND AT RP2D (DOSE?EXPANSION PHASE) ON DAY
     Route: 042
     Dates: start: 20171221
  37. CILAZAPRILUM [Concomitant]
     Indication: HYPERTENSION
     Route: 048
     Dates: start: 20180129, end: 20180227
  38. VORICONAZOLE. [Concomitant]
     Active Substance: VORICONAZOLE
     Indication: ASPERGILLUS INFECTION
     Route: 042
     Dates: start: 20180305, end: 20180310
  39. ENOXAPARINUM NATRICUM [Concomitant]
     Indication: PULMONARY EMBOLISM
     Route: 058
     Dates: start: 20180228
  40. KCL [Concomitant]
     Active Substance: POTASSIUM CHLORIDE
     Route: 065
     Dates: start: 20180322, end: 20180322
  41. ALBUMIN [Concomitant]
     Active Substance: ALBUMIN HUMAN
     Indication: HYPOALBUMINAEMIA
     Route: 042
     Dates: start: 20180322
  42. FUROSEMIDUM [Concomitant]
     Active Substance: FUROSEMIDE
     Indication: FLUID OVERLOAD
     Route: 042
     Dates: start: 20180317, end: 20180317
  43. CEFTAZIDIMUM [Concomitant]
     Active Substance: CEFTAZIDIME
     Indication: PNEUMONITIS
     Route: 042
     Dates: start: 20180130, end: 20180218
  44. FLUCONAZOLE. [Concomitant]
     Active Substance: FLUCONAZOLE
     Route: 042
     Dates: start: 20180214, end: 20180226
  45. TACROLIMUS. [Concomitant]
     Active Substance: TACROLIMUS
     Indication: ERYTHEMA
     Route: 048
     Dates: start: 20180302, end: 20180309
  46. BUDESONIDE. [Concomitant]
     Active Substance: BUDESONIDE
     Dosage: DOSE: 250 MG/ML
     Route: 055
     Dates: start: 20180316
  47. METHYLPREDNISOLONUM [Concomitant]
     Active Substance: METHYLPREDNISOLONE
     Indication: PNEUMONITIS
     Route: 042
     Dates: start: 20180312, end: 20180315
  48. VORICONAZOLE. [Concomitant]
     Active Substance: VORICONAZOLE
     Route: 042
     Dates: start: 20180310
  49. GANCICLOVIR. [Concomitant]
     Active Substance: GANCICLOVIR
     Indication: CYTOMEGALOVIRUS INFECTION
     Route: 065
     Dates: start: 20180313, end: 20180321
  50. FUROSEMIDUM [Concomitant]
     Active Substance: FUROSEMIDE
     Indication: OEDEMA
     Route: 042
     Dates: start: 20180320
  51. PLATELETS [Concomitant]
     Active Substance: HUMAN PLATELET, ALLOGENIC
     Indication: THROMBOCYTOPENIA
     Dosage: 6 UNITS
     Route: 065
     Dates: start: 20180321, end: 20180322
  52. TRIBIOTIC [Concomitant]
     Active Substance: BACITRACIN ZINC\NEOMYCIN SULFATE\POLYMYXIN B SULFATE
     Indication: ERYTHEMA
     Route: 065
     Dates: start: 20180317, end: 20180318
  53. TORASEMIDUM [Concomitant]
     Indication: HYPERTENSION
     Route: 048
     Dates: start: 20180129, end: 20180227
  54. FLUCONAZOLE. [Concomitant]
     Active Substance: FLUCONAZOLE
     Indication: PNEUMONITIS
     Route: 048
     Dates: start: 20180130, end: 20180226
  55. METHYLPREDNISOLONUM [Concomitant]
     Active Substance: METHYLPREDNISOLONE
     Indication: MUCOSAL INFLAMMATION
     Route: 042
     Dates: start: 20180216, end: 20180305
  56. VORICONAZOLE. [Concomitant]
     Active Substance: VORICONAZOLE
     Route: 042
     Dates: start: 20180311
  57. KCL [Concomitant]
     Active Substance: POTASSIUM CHLORIDE
     Indication: HYPOKALAEMIA
     Route: 042
     Dates: start: 20180206
  58. ATROVENT [Concomitant]
     Active Substance: IPRATROPIUM BROMIDE
     Indication: PNEUMONITIS
     Route: 055
     Dates: start: 20180316

REACTIONS (2)
  - Anaemia [Recovering/Resolving]
  - Guillain-Barre syndrome [Recovering/Resolving]

NARRATIVE: CASE EVENT DATE: 20180320
